FAERS Safety Report 20095394 (Version 2)
Quarter: 2022Q1

REPORT INFORMATION
  Report Type: Spontaneous
  Country: TR (occurrence: TR)
  Receive Date: 20211122
  Receipt Date: 20220103
  Transmission Date: 20220423
  Serious: Yes (Death, Hospitalization, Other)
  Sender: FDA-Public Use
  Company Number: TR-AMGEN-TURSP2021183137

PATIENT
  Age: 49 Year
  Sex: Female

DRUGS (4)
  1. FILGRASTIM [Suspect]
     Active Substance: FILGRASTIM
     Indication: Prophylaxis
     Route: 065
  2. FLUDARABINE [Concomitant]
     Active Substance: FLUDARABINE PHOSPHATE
     Dosage: 30 MG/M2, D2-D6
     Route: 042
  3. CYTARABINE [Concomitant]
     Active Substance: CYTARABINE
     Dosage: 2 G/M2, D2-D6
     Route: 042
  4. IDARUBICIN [Concomitant]
     Active Substance: IDARUBICIN
     Dosage: 8 MG/M2, D4-6
     Route: 042

REACTIONS (1)
  - COVID-19 [Fatal]
